FAERS Safety Report 25070316 (Version 1)
Quarter: 2025Q1

REPORT INFORMATION
  Report Type: Spontaneous
  Country: US (occurrence: None)
  Receive Date: 20250312
  Receipt Date: 20250312
  Transmission Date: 20250409
  Serious: Yes (Other)
  Sender: FDA-CTU
  Company Number: None

PATIENT
  Age: 39 Year
  Sex: Male
  Weight: 52.65 kg

DRUGS (4)
  1. CLINDAMYCIN [Suspect]
     Active Substance: CLINDAMYCIN
     Indication: Sinusitis
     Dosage: OTHER QUANTITY : 1 CAPSULE(S);?FREQUENCY : 4 TIMES A DAY;?
     Route: 048
     Dates: start: 20250220, end: 20250223
  2. PREDNISONE [Suspect]
     Active Substance: PREDNISONE
  3. AMOXICILLIN\CLAVULANATE POTASSIUM [Suspect]
     Active Substance: AMOXICILLIN\CLAVULANATE POTASSIUM
  4. aptiom 1800mg [Concomitant]

REACTIONS (3)
  - Stevens-Johnson syndrome [None]
  - Miliaria [None]
  - Drug hypersensitivity [None]

NARRATIVE: CASE EVENT DATE: 20250223
